FAERS Safety Report 5518161-X (Version None)
Quarter: 2007Q4

REPORT INFORMATION
  Report Type: 
  Country: None (occurrence: None)
  Receive Date: 20071113
  Receipt Date: 20071030
  Transmission Date: 20080405
  Serious: Yes (Hospitalization)
  Sender: FDA-Public Use
  Company Number: 02100-JPN-07-0558

PATIENT
  Age: 64 Year
  Sex: Female

DRUGS (7)
  1. CILOSTAZOL [Suspect]
     Indication: ARTERIOSCLEROSIS
     Dosage: 200 MG, ORAL
     Route: 048
     Dates: start: 20050819, end: 20071004
  2. IRBESARTAN [Concomitant]
  3. REGULAR INSULIN 30%/ISOPHANE INSULIN [Concomitant]
  4. ADCAL [Concomitant]
  5. CALCIUM ASCORBATE [Concomitant]
  6. GAMMA-LINOLENIC ACID [Concomitant]
  7. DOXIELURIDINE [Concomitant]

REACTIONS (2)
  - ABDOMINAL HERNIA [None]
  - INCISIONAL HERNIA [None]
